FAERS Safety Report 6636303-X (Version None)
Quarter: 2010Q1

REPORT INFORMATION
  Report Type: 
  Country: None (occurrence: None)
  Receive Date: 20100316
  Receipt Date: 20100315
  Transmission Date: 20100710
  Serious: Yes (Hospitalization)
  Sender: FDA-Public Use
  Company Number: US-ABBOTT-10P-163-0629624-00

PATIENT
  Sex: Female
  Weight: 87.622 kg

DRUGS (2)
  1. HUMIRA [Suspect]
     Indication: CROHN'S DISEASE
     Route: 058
     Dates: start: 20090401, end: 20090901
  2. HUMIRA [Suspect]
     Route: 058
     Dates: start: 20090901

REACTIONS (3)
  - FISTULA [None]
  - INTESTINAL PERFORATION [None]
  - JOINT SWELLING [None]
